FAERS Safety Report 23664502 (Version 1)
Quarter: 2024Q1

REPORT INFORMATION
  Report Type: Other
  Country: IE (occurrence: IE)
  Receive Date: 20240322
  Receipt Date: 20240322
  Transmission Date: 20240410
  Serious: Yes (Congenital Anomaly, Other)
  Sender: FDA-Public Use
  Company Number: IE-Merck Healthcare KGaA-2024015326

PATIENT
  Age: 38 Year
  Sex: Female

DRUGS (4)
  1. METFORMIN HYDROCHLORIDE [Suspect]
     Active Substance: METFORMIN HYDROCHLORIDE
     Indication: Diabetes mellitus
  2. INSULIN NOS [Concomitant]
     Active Substance: INSULIN NOS
     Indication: Diabetes mellitus
     Dosage: 68 UNITS (0.9 UNITS PER KILOGRAM) FOR FIRST TRIMESTER
  3. INSULIN NOS [Concomitant]
     Active Substance: INSULIN NOS
     Dosage: 120UNITS (1.4 UNITS PER KILOGRAM) AT THIRD TRIMESTER
  4. FOLIC ACID [Concomitant]
     Active Substance: FOLIC ACID
     Indication: Product used for unknown indication

REACTIONS (3)
  - Foetal death [Recovered/Resolved]
  - Ventricular septal defect [Unknown]
  - Maternal exposure during pregnancy [Recovered/Resolved]
